FAERS Safety Report 9680840 (Version 1)
Quarter: 2013Q4

REPORT INFORMATION
  Report Type: Spontaneous
  Country: ES (occurrence: ES)
  Receive Date: 20131111
  Receipt Date: 20131111
  Transmission Date: 20140711
  Serious: Yes (Hospitalization)
  Sender: FDA-Public Use
  Company Number: PHHY2013ES126988

PATIENT
  Age: 59 Year
  Sex: Male

DRUGS (4)
  1. TEGRETOL [Suspect]
     Dosage: 200 MG, TID
     Route: 048
     Dates: start: 20130110, end: 20130121
  2. TEGRETOL [Suspect]
     Dosage: 200 MG, DAILY (0.5 TABLETS/12HR)
     Route: 048
  3. CITALOPRAM [Suspect]
     Indication: DEPRESSION
     Dosage: 20 MG, QD
     Route: 048
     Dates: start: 20121211, end: 20130121
  4. CITALOPRAM [Suspect]
     Dosage: 10 MG, DAILY
     Route: 048

REACTIONS (2)
  - Condition aggravated [Recovered/Resolved]
  - Ataxia [Recovered/Resolved]
